FAERS Safety Report 15750375 (Version 1)
Quarter: 2018Q4

REPORT INFORMATION
  Report Type: Spontaneous
  Country: US (occurrence: US)
  Receive Date: 20181205
  Receipt Date: 20181205
  Transmission Date: 20190205
  Serious: Yes (Other)
  Sender: FDA-Public Use
  Company Number: None

PATIENT
  Age: 67 Year
  Sex: Male

DRUGS (1)
  1. EPCLUSA [Suspect]
     Active Substance: SOFOSBUVIR\VELPATASVIR
     Indication: HEPATITIS C
     Route: 048
     Dates: start: 20181101, end: 20181126

REACTIONS (5)
  - Therapy cessation [None]
  - Depression [None]
  - Tremor [None]
  - Suicidal ideation [None]
  - Hyperhidrosis [None]

NARRATIVE: CASE EVENT DATE: 20181204
